FAERS Safety Report 21384789 (Version 4)
Quarter: 2022Q4

REPORT INFORMATION
  Report Type: Report from Study
  Country: JP (occurrence: JP)
  Receive Date: 20220928
  Receipt Date: 20221121
  Transmission Date: 20230113
  Serious: Yes (Hospitalization)
  Sender: FDA-Public Use
  Company Number: JP-SAKK-2022SA389093AA

PATIENT
  Age: 64 Year
  Sex: Male
  Weight: 64.2 kg

DRUGS (25)
  1. ISATUXIMAB [Suspect]
     Active Substance: ISATUXIMAB
     Indication: Plasma cell myeloma
     Dosage: 10 MG/KG (DAY 1, DAY 15)
     Route: 041
     Dates: start: 20180604
  2. ISATUXIMAB [Suspect]
     Active Substance: ISATUXIMAB
     Dosage: 645 MG, 1X
     Route: 041
     Dates: start: 20220912, end: 20220912
  3. CARFILZOMIB [Suspect]
     Active Substance: CARFILZOMIB
     Indication: Plasma cell myeloma
     Dosage: 36 MG/M2 (DAY 1, 2, 15, 16)
     Route: 042
     Dates: start: 20180604
  4. CARFILZOMIB [Suspect]
     Active Substance: CARFILZOMIB
     Dosage: 60.58 MG, 1X
     Route: 042
     Dates: start: 20220912, end: 20220912
  5. CARFILZOMIB [Suspect]
     Active Substance: CARFILZOMIB
     Dosage: 60.58 MG, 1X
     Route: 042
     Dates: start: 20220913, end: 20220913
  6. DEXAMETHASONE [Suspect]
     Active Substance: DEXAMETHASONE
     Indication: Plasma cell myeloma
     Dosage: 12 MG (DAY 1, 2, 15, 16)
     Route: 042
     Dates: start: 20180604
  7. DEXAMETHASONE [Suspect]
     Active Substance: DEXAMETHASONE
     Dosage: 12 MG
     Route: 048
     Dates: start: 20180611
  8. DEXAMETHASONE [Suspect]
     Active Substance: DEXAMETHASONE
     Dosage: 12 MG
     Route: 042
     Dates: start: 20220912
  9. DEXAMETHASONE [Suspect]
     Active Substance: DEXAMETHASONE
     Dosage: 12 MG
     Route: 042
     Dates: start: 20220913
  10. NEXIUM [Concomitant]
     Active Substance: ESOMEPRAZOLE MAGNESIUM
     Indication: Gastritis prophylaxis
     Dosage: 10 MG, QD
     Route: 048
  11. JANUVIA [Concomitant]
     Active Substance: SITAGLIPTIN PHOSPHATE
     Indication: Diabetes mellitus
     Dosage: 50 MG, QD
     Route: 048
     Dates: start: 20170530
  12. ZOVIRAX [Concomitant]
     Active Substance: ACYCLOVIR
     Indication: Prophylaxis
     Dosage: 200 MG, QD
     Route: 048
     Dates: start: 20180618
  13. NIFEDIPINE [Concomitant]
     Active Substance: NIFEDIPINE
     Indication: Hypertension
     Dosage: 40 MG, BID
     Route: 048
     Dates: start: 20120130
  14. IRBESARTAN [Concomitant]
     Active Substance: IRBESARTAN
     Indication: Hypertension
     Dosage: 100 MG, QD
     Route: 048
     Dates: start: 20120120
  15. MIYA-BM [Concomitant]
     Active Substance: CLOSTRIDIUM BUTYRICUM SPORES STRAIN M-55
     Indication: Diarrhoea
     Dosage: 20 MG, TID
     Route: 048
     Dates: start: 20121018
  16. SULFAMETHOXAZOLE\TRIMETHOPRIM [Concomitant]
     Active Substance: SULFAMETHOXAZOLE\TRIMETHOPRIM
     Indication: Prophylaxis
     Dosage: 1 TABLET, QD
     Route: 048
     Dates: start: 20181105
  17. NOVOLIN R [Concomitant]
     Active Substance: INSULIN HUMAN
     Indication: Diabetes mellitus
     Dosage: 3 TIMES/DAY, MONDAY, TUESDAY, WEDNESDAY
     Route: 058
     Dates: start: 20180604
  18. TRICHLORMETHIAZIDE [Concomitant]
     Active Substance: TRICHLORMETHIAZIDE
     Indication: Hypertension
     Dosage: 0.5 MG, QD
     Route: 048
     Dates: start: 20210412
  19. PEMAFIBRATE [Concomitant]
     Active Substance: PEMAFIBRATE
     Indication: Hyperlipidaemia
     Dosage: 1 TABLET, BID
     Route: 048
     Dates: start: 20180814
  20. HEPARINOID [Concomitant]
     Indication: Product used for unknown indication
     Dosage: UNK
     Route: 061
     Dates: start: 20200903
  21. EFINACONAZOLE [Concomitant]
     Active Substance: EFINACONAZOLE
     Indication: Product used for unknown indication
     Dosage: UNK
     Route: 061
     Dates: start: 20200903
  22. DEXCHLORPHENIRAMINE MALEATE [Concomitant]
     Active Substance: DEXCHLORPHENIRAMINE MALEATE
     Indication: Prophylaxis
     Dosage: TOTAL DAILY DOSE: 5 MG
     Route: 042
     Dates: start: 20220912, end: 20220912
  23. FAMOTIDINE [Concomitant]
     Active Substance: FAMOTIDINE
     Indication: Prophylaxis
     Dosage: TOTAL DAILY DOSE: 20 MG
     Route: 042
     Dates: start: 20220912, end: 20220912
  24. ACETAMINOPHEN [Concomitant]
     Active Substance: ACETAMINOPHEN
     Indication: Prophylaxis
     Dosage: TOTAL DAILY DOSE: 700 MG
     Route: 048
     Dates: start: 20220912, end: 20220912
  25. ACETAMINOPHEN [Concomitant]
     Active Substance: ACETAMINOPHEN
     Indication: Product used for unknown indication
     Dosage: UNK
     Route: 048
     Dates: start: 20220917

REACTIONS (1)
  - Sepsis [Recovered/Resolved]

NARRATIVE: CASE EVENT DATE: 20220917
